FAERS Safety Report 6881385-3 (Version None)
Quarter: 2010Q3

REPORT INFORMATION
  Report Type: 
  Country: None (occurrence: None)
  Receive Date: 20100728
  Receipt Date: 20100728
  Transmission Date: 20110219
  Serious: Yes (Hospitalization)
  Sender: FDA-Public Use
  Company Number: None

PATIENT
  Sex: Male
  Weight: 86.5 kg

DRUGS (1)
  1. MEMANTINE HCL [Suspect]
     Dosage: 70 MG

REACTIONS (2)
  - CONFUSIONAL STATE [None]
  - CONVULSION [None]
